FAERS Safety Report 8560122-0 (Version None)
Quarter: 2012Q3

REPORT INFORMATION
  Report Type: 
  Country: None (occurrence: None)
  Receive Date: 20120802
  Receipt Date: 20120726
  Transmission Date: 20120928
  Serious: Yes (Other)
  Sender: FDA-Public Use
  Company Number: DE-UCBSA-045573

PATIENT
  Age: 76 Year
  Sex: Male
  Weight: 60 kg

DRUGS (4)
  1. CANDESARTAN CILEXETIL [Interacting]
     Dosage: 8 MG
  2. KRYON [Concomitant]
     Dosage: UNKNOWN DOASAGE
  3. KEPPRA [Suspect]
  4. KEPPRA [Interacting]
     Route: 048
     Dates: start: 20110922

REACTIONS (14)
  - INCREASED UPPER AIRWAY SECRETION [None]
  - PANCREATITIS CHRONIC [None]
  - GRAND MAL CONVULSION [None]
  - PARAESTHESIA [None]
  - VOMITING [None]
  - ELECTROLYTE DEPLETION [None]
  - EYE DISORDER [None]
  - MIGRAINE [None]
  - BLOOD SODIUM DECREASED [None]
  - DRUG INTERACTION [None]
  - VISION BLURRED [None]
  - DIARRHOEA [None]
  - RENAL IMPAIRMENT [None]
  - NAIL DISCOLOURATION [None]
